FAERS Safety Report 10100831 (Version 1)
Quarter: 2014Q2

REPORT INFORMATION
  Report Type: Spontaneous
  Country: US (occurrence: US)
  Receive Date: 20140423
  Receipt Date: 20140423
  Transmission Date: 20141212
  Serious: Yes (Other)
  Sender: FDA-Public Use
  Company Number: US-GILEAD-2014-0100375

PATIENT
  Sex: Female

DRUGS (6)
  1. LETAIRIS [Suspect]
     Indication: PRODUCT USED FOR UNKNOWN INDICATION
     Dosage: 5 MG, UNK
     Route: 065
     Dates: start: 20080708, end: 20140328
  2. MACITENTAN [Concomitant]
  3. ADCIRCA [Concomitant]
  4. COUMADIN                           /00014802/ [Concomitant]
  5. LASIX                              /00032601/ [Concomitant]
  6. SPIRONOLACTONE [Concomitant]

REACTIONS (3)
  - Pancreatic carcinoma [Unknown]
  - Lymphoedema [Unknown]
  - Fluid retention [Recovered/Resolved]
